FAERS Safety Report 5317436-7 (Version None)
Quarter: 2007Q2

REPORT INFORMATION
  Report Type: 
  Country: None (occurrence: None)
  Receive Date: 20070503
  Receipt Date: 20070503
  Transmission Date: 20071010
  Serious: No
  Sender: FDA-Public Use
  Company Number: None

PATIENT
  Sex: Female
  Weight: 77.1115 kg

DRUGS (1)
  1. LEVOTHYROXINE SODIUM [Suspect]
     Indication: HYPOTHYROIDISM
     Dosage: VARIABLE QD
     Dates: start: 20060101

REACTIONS (6)
  - BLOOD THYROID STIMULATING HORMONE INCREASED [None]
  - CONSTIPATION [None]
  - FATIGUE [None]
  - HYPOTHYROIDISM [None]
  - LETHARGY [None]
  - THERAPEUTIC RESPONSE UNEXPECTED WITH DRUG SUBSTITUTION [None]
